FAERS Safety Report 5576819-0 (Version None)
Quarter: 2007Q4

REPORT INFORMATION
  Report Type: 
  Country: None (occurrence: None)
  Receive Date: 20071228
  Receipt Date: 20071221
  Transmission Date: 20080405
  Serious: Yes (Other)
  Sender: FDA-Public Use
  Company Number: US-JNJFOC-20070301567

PATIENT
  Sex: Female

DRUGS (3)
  1. INVEGA [Suspect]
     Indication: ANXIETY
     Route: 048
  2. INVEGA [Suspect]
     Indication: MAJOR DEPRESSION
     Route: 048
  3. CITALOPRAM [Concomitant]
     Indication: MAJOR DEPRESSION

REACTIONS (3)
  - AGITATION [None]
  - ANXIETY [None]
  - CATATONIA [None]
